FAERS Safety Report 11058649 (Version 1)
Quarter: 2015Q2

REPORT INFORMATION
  Report Type: Spontaneous
  Country: US (occurrence: None)
  Receive Date: 20150422
  Receipt Date: 20150422
  Transmission Date: 20150821
  Serious: Yes (Hospitalization, Disabling)
  Sender: FDA-Public Use
  Company Number: None

PATIENT
  Age: 80 Year
  Sex: Male
  Weight: 108.86 kg

DRUGS (1)
  1. MELOXICAM 1.5 MG TAB [Suspect]
     Active Substance: MELOXICAM
     Indication: MUSCULOSKELETAL PAIN
     Dosage: 30 TAB
     Dates: start: 20130220, end: 20130228

REACTIONS (3)
  - Abasia [None]
  - Meningioma [None]
  - Dizziness [None]

NARRATIVE: CASE EVENT DATE: 20130220
